FAERS Safety Report 4336312-X (Version None)
Quarter: 2004Q2

REPORT INFORMATION
  Report Type: 
  Country: None (occurrence: None)
  Receive Date: 20040407
  Receipt Date: 20040324
  Transmission Date: 20050107
  Serious: No
  Sender: FDA-Public Use
  Company Number: 205440

PATIENT
  Age: 51 Year
  Sex: Female
  Weight: 64.4 kg

DRUGS (9)
  1. HERCEPTIN [Suspect]
     Indication: BREAST CANCER METASTATIC
     Dosage: SEE IMAGE
     Route: 042
     Dates: start: 20030521, end: 20030521
  2. HERCEPTIN [Suspect]
     Indication: BREAST CANCER METASTATIC
     Dosage: SEE IMAGE
     Route: 042
     Dates: start: 20030528, end: 20040220
  3. HERCEPTIN [Suspect]
     Indication: BREAST CANCER METASTATIC
     Dosage: SEE IMAGE
     Route: 042
     Dates: start: 20040201, end: 20040315
  4. ... [Concomitant]
  5. ... [Concomitant]
  6. NAVELBINE [Concomitant]
  7. FASLODEX (FULVESTRANT) [Concomitant]
  8. DECADRON [Concomitant]
  9. KYTRIL [Concomitant]

REACTIONS (1)
  - CORNEAL ABRASION [None]
